FAERS Safety Report 16872251 (Version 2)
Quarter: 2019Q4

REPORT INFORMATION
  Report Type: Spontaneous
  Country: JP (occurrence: JP)
  Receive Date: 20191001
  Receipt Date: 20191104
  Transmission Date: 20200122
  Serious: Yes (Hospitalization, Other)
  Sender: FDA-Public Use
  Company Number: JP-AMGEN-JPNSP2019159557

PATIENT
  Age: 94 Year
  Sex: Female

DRUGS (3)
  1. EVENITY [Suspect]
     Active Substance: ROMOSOZUMAB-AQQG
     Indication: PRODUCT USED FOR UNKNOWN INDICATION
     Dosage: 210 MILLIGRAM
     Route: 058
     Dates: start: 20190529
  2. EBRANTIL [URAPIDIL] [Concomitant]
     Active Substance: URAPIDIL
     Dosage: UNK
  3. CELECOX [Concomitant]
     Active Substance: CELECOXIB

REACTIONS (1)
  - Lumbar vertebral fracture [Unknown]

NARRATIVE: CASE EVENT DATE: 20190731
